FAERS Safety Report 5563905-4 (Version None)
Quarter: 2007Q4

REPORT INFORMATION
  Report Type: 
  Country: None (occurrence: None)
  Receive Date: 20071217
  Receipt Date: 20071102
  Transmission Date: 20080405
  Serious: No
  Sender: FDA-Public Use
  Company Number: US-ASTRAZENECA-2007UW25489

PATIENT
  Age: 54 Year
  Sex: Male
  Weight: 111.1 kg

DRUGS (1)
  1. CRESTOR [Suspect]
     Route: 048

REACTIONS (7)
  - CHEST DISCOMFORT [None]
  - EPISTAXIS [None]
  - FATIGUE [None]
  - HEADACHE [None]
  - INSOMNIA [None]
  - PALPITATIONS [None]
  - PANIC ATTACK [None]
